FAERS Safety Report 4332926-1 (Version None)
Quarter: 2004Q2

REPORT INFORMATION
  Report Type: 
  Country: None (occurrence: None)
  Receive Date: 20040405
  Receipt Date: 20040405
  Transmission Date: 20050107
  Serious: Yes (Disabling)
  Sender: FDA-Public Use
  Company Number: None

PATIENT
  Age: 54 Year
  Sex: Female
  Weight: 72.5755 kg

DRUGS (2)
  1. SERZONE [Suspect]
     Indication: ANXIETY
     Dosage: ONCE A DAY
     Dates: start: 20010701, end: 20030101
  2. SERZONE [Suspect]
     Indication: DEPRESSION
     Dosage: ONCE A DAY
     Dates: start: 20010701, end: 20030101

REACTIONS (6)
  - ABNORMAL BEHAVIOUR [None]
  - AMNESIA [None]
  - CONFUSIONAL STATE [None]
  - EATING DISORDER [None]
  - LOSS OF EMPLOYMENT [None]
  - REPETITIVE SPEECH [None]
